FAERS Safety Report 15955381 (Version 1)
Quarter: 2019Q1

REPORT INFORMATION
  Report Type: Spontaneous
  Country: GB (occurrence: GB)
  Receive Date: 20190213
  Receipt Date: 20190213
  Transmission Date: 20190417
  Serious: Yes (Life-Threatening, Hospitalization, Other)
  Sender: FDA-Public Use
  Company Number: GB-ACCORD-106049

PATIENT
  Age: 17 Year
  Sex: Female
  Weight: 47 kg

DRUGS (1)
  1. SERTRALINE [Suspect]
     Active Substance: SERTRALINE HYDROCHLORIDE
     Indication: DEPRESSION
     Route: 048
     Dates: start: 201701, end: 20171105

REACTIONS (12)
  - Bruxism [Recovering/Resolving]
  - Tardive dyskinesia [Recovering/Resolving]
  - Suicide attempt [Recovered/Resolved with Sequelae]
  - Intentional overdose [Unknown]
  - Condition aggravated [Recovering/Resolving]
  - Muscle spasms [Recovering/Resolving]
  - Restless legs syndrome [Recovering/Resolving]
  - Tinnitus [Recovering/Resolving]
  - Tic [Recovering/Resolving]
  - Suicidal ideation [Recovering/Resolving]
  - Sensory disturbance [Recovering/Resolving]
  - Headache [Recovering/Resolving]

NARRATIVE: CASE EVENT DATE: 201701
